FAERS Safety Report 7090256-1 (Version None)
Quarter: 2010Q4

REPORT INFORMATION
  Report Type: 
  Country: None (occurrence: None)
  Receive Date: 20101104
  Receipt Date: 20101104
  Transmission Date: 20110411
  Serious: No
  Sender: FDA-Public Use
  Company Number: None

PATIENT
  Age: 58 Year
  Sex: Female

DRUGS (3)
  1. MODAFINIL [Suspect]
     Indication: LIVER DISORDER
     Dates: start: 20090503, end: 20090507
  2. AMIODARONE [Suspect]
     Indication: LIVER DISORDER
     Dates: start: 20090407, end: 20090505
  3. SITAGLIPTIN [Suspect]
     Indication: LIVER DISORDER
     Dates: start: 20090513, end: 20090527

REACTIONS (1)
  - HEPATIC STEATOSIS [None]
